FAERS Safety Report 12631794 (Version 2)
Quarter: 2016Q3

REPORT INFORMATION
  Report Type: Spontaneous
  Country: US (occurrence: US)
  Receive Date: 20160808
  Receipt Date: 20160808
  Transmission Date: 20161109
  Serious: No
  Sender: FDA-Public Use
  Company Number: US-BEH-2016061060

PATIENT
  Sex: Female
  Weight: 54 kg

DRUGS (23)
  1. ACETAMINOPHEN. [Concomitant]
     Active Substance: ACETAMINOPHEN
  2. DIPHENHYDRAMINE. [Concomitant]
     Active Substance: DIPHENHYDRAMINE
  3. LAMICTAL [Concomitant]
     Active Substance: LAMOTRIGINE
  4. ZYRTEC [Concomitant]
     Active Substance: CETIRIZINE HYDROCHLORIDE
  5. PREMARIN [Concomitant]
     Active Substance: ESTROGENS, CONJUGATED
  6. CRESTOR [Concomitant]
     Active Substance: ROSUVASTATIN CALCIUM
  7. CELEXA [Concomitant]
     Active Substance: CITALOPRAM HYDROBROMIDE
  8. ALBUTEROL. [Concomitant]
     Active Substance: ALBUTEROL
  9. HIZENTRA [Suspect]
     Active Substance: HUMAN IMMUNOGLOBULIN G
     Indication: IMMUNODEFICIENCY COMMON VARIABLE
     Route: 058
     Dates: start: 20150216
  10. NITROGLYCERIN. [Concomitant]
     Active Substance: NITROGLYCERIN
  11. CODEINE [Concomitant]
     Active Substance: CODEINE
  12. PROAIR HFA [Concomitant]
     Active Substance: ALBUTEROL SULFATE
  13. SINGULAIR [Concomitant]
     Active Substance: MONTELUKAST SODIUM
  14. IMDUR [Concomitant]
     Active Substance: ISOSORBIDE MONONITRATE
  15. TOPAMAX [Concomitant]
     Active Substance: TOPIRAMATE
  16. ASPIRIN. [Concomitant]
     Active Substance: ASPIRIN
  17. LIDOCAINE. [Concomitant]
     Active Substance: LIDOCAINE
  18. AMBIEN [Concomitant]
     Active Substance: ZOLPIDEM TARTRATE
  19. MIRALAX [Concomitant]
     Active Substance: POLYETHYLENE GLYCOL 3350
  20. SYNTHROID [Concomitant]
     Active Substance: LEVOTHYROXINE SODIUM
  21. PULMICORT TURBUHALER [Concomitant]
     Active Substance: BUDESONIDE
  22. EPIPEN [Concomitant]
     Active Substance: EPINEPHRINE
  23. XANAX [Concomitant]
     Active Substance: ALPRAZOLAM

REACTIONS (1)
  - Administration site rash [Unknown]
